FAERS Safety Report 14794920 (Version 1)
Quarter: 2018Q2

REPORT INFORMATION
  Report Type: Spontaneous
  Country: JP (occurrence: JP)
  Receive Date: 20180423
  Receipt Date: 20180423
  Transmission Date: 20180711
  Serious: Yes (Hospitalization, Other)
  Sender: FDA-Public Use
  Company Number: JP-SHIRE-JP201813937

PATIENT
  Age: 78 Year
  Sex: Male

DRUGS (2)
  1. BAYASPIRIN [Suspect]
     Active Substance: ASPIRIN
     Indication: PRODUCT USED FOR UNKNOWN INDICATION
     Dosage: UNK, UNKNOWN
     Route: 065
     Dates: start: 20180216, end: 20180401
  2. AGRYLIN [Suspect]
     Active Substance: ANAGRELIDE HYDROCHLORIDE
     Indication: ESSENTIAL THROMBOCYTHAEMIA
     Dosage: 0.5 MG, 1X/DAY:QD
     Route: 048
     Dates: start: 20180316, end: 20180401

REACTIONS (1)
  - Small intestinal haemorrhage [Recovering/Resolving]

NARRATIVE: CASE EVENT DATE: 20180401
